FAERS Safety Report 8402548-1 (Version None)
Quarter: 2012Q2

REPORT INFORMATION
  Report Type: 
  Country: None (occurrence: None)
  Receive Date: 20120601
  Receipt Date: 20120530
  Transmission Date: 20120825
  Serious: Yes (Hospitalization)
  Sender: FDA-Public Use
  Company Number: PHEH2011US06560

PATIENT
  Sex: Female

DRUGS (4)
  1. TYSABRI [Suspect]
     Dosage: UNK UKN, UNK
     Dates: start: 20111101
  2. TYSABRI [Suspect]
     Dosage: 300 MG, QD
     Route: 042
     Dates: start: 20080826, end: 20101117
  3. COPAXONE [Concomitant]
  4. GILENYA [Suspect]
     Dosage: 0.5 MG, QD
     Route: 048
     Dates: start: 20110921

REACTIONS (10)
  - MALAISE [None]
  - BACK PAIN [None]
  - CONSTIPATION [None]
  - ABDOMINAL PAIN UPPER [None]
  - CENTRAL NERVOUS SYSTEM LESION [None]
  - DECREASED APPETITE [None]
  - COGNITIVE DISORDER [None]
  - DEMYELINATION [None]
  - FATIGUE [None]
  - VISION BLURRED [None]
